FAERS Safety Report 4556928-5 (Version None)
Quarter: 2005Q1

REPORT INFORMATION
  Report Type: 
  Country: None (occurrence: None)
  Receive Date: 20050114
  Receipt Date: 20050106
  Transmission Date: 20050727
  Serious: No
  Sender: FDA-Public Use
  Company Number: 04H-163-0283496-00

PATIENT
  Age: 11 Year
  Sex: Female
  Weight: 31 kg

DRUGS (2)
  1. SODIUM BICARBONATE  8.4%  INJECTION, USP, 50 MEQ TOTAL, FT VIAL (SODIU [Suspect]
     Dosage: 30 ML ONCE INTRAVENOUS
     Route: 042
     Dates: start: 20041201, end: 20041201
  2. GLUCOSE [Suspect]
     Dosage: INTRAVENOUS
     Route: 042
     Dates: start: 20041201, end: 20041201

REACTIONS (3)
  - ANAPHYLACTIC REACTION [None]
  - INFUSION RELATED REACTION [None]
  - RESPIRATORY DISTRESS [None]
